FAERS Safety Report 4971502-4 (Version None)
Quarter: 2006Q2

REPORT INFORMATION
  Report Type: 
  Country: None (occurrence: None)
  Receive Date: 20060413
  Receipt Date: 20060405
  Transmission Date: 20061013
  Serious: Yes (Other)
  Sender: FDA-Public Use
  Company Number: PHBS2006BR05252

PATIENT
  Sex: Male

DRUGS (1)
  1. ZOMETA [Suspect]
     Indication: PROSTATE CANCER
     Route: 065

REACTIONS (4)
  - BONE DISORDER [None]
  - DENTAL IMPLANTATION [None]
  - OSTEOMYELITIS [None]
  - OSTEONECROSIS [None]
